FAERS Safety Report 23347844 (Version 3)
Quarter: 2024Q1

REPORT INFORMATION
  Report Type: Spontaneous
  Country: DE (occurrence: DE)
  Receive Date: 20231228
  Receipt Date: 20240209
  Transmission Date: 20240410
  Serious: Yes (Hospitalization)
  Sender: FDA-Public Use
  Company Number: DE-ROCHE-2677818

PATIENT
  Age: 27 Year
  Sex: Female

DRUGS (13)
  1. COMIRNATY (TOZINAMERAN) [Suspect]
     Active Substance: TOZINAMERAN
     Indication: Product used for unknown indication
     Dosage: UNK
     Route: 065
  2. CORTISONE [Suspect]
     Active Substance: CORTISONE
     Indication: Pyrexia
     Dosage: 50 MG, QD
     Route: 048
     Dates: start: 20230628, end: 20230702
  3. CORTISONE [Suspect]
     Active Substance: CORTISONE
     Dosage: 7.5 MG
     Route: 065
     Dates: start: 202303
  4. METHOTREXATE [Suspect]
     Active Substance: METHOTREXATE
     Indication: Psoriatic arthropathy
     Dosage: 15 MG
     Route: 065
     Dates: start: 202302
  5. METHOTREXATE [Suspect]
     Active Substance: METHOTREXATE
     Dosage: 7.5 MG
     Route: 065
     Dates: start: 202303
  6. OCREVUS [Suspect]
     Active Substance: OCRELIZUMAB
     Indication: Relapsing multiple sclerosis
     Dosage: 300 MG
     Route: 042
     Dates: start: 20200908
  7. OCREVUS [Suspect]
     Active Substance: OCRELIZUMAB
     Dosage: 600 MG
     Route: 042
  8. OCREVUS [Suspect]
     Active Substance: OCRELIZUMAB
     Dosage: 600 MG, SUBSEQUENT 3RD MAINTENANCE DOSE  ON 31/MAR/2022
     Route: 042
     Dates: start: 20220331
  9. OCREVUS [Suspect]
     Active Substance: OCRELIZUMAB
     Dosage: 600 MG, SECOND INFUSION
     Route: 042
     Dates: start: 20200924
  10. CHOLECALCIFEROL [Concomitant]
     Active Substance: CHOLECALCIFEROL
     Indication: Product used for unknown indication
     Dosage: 20000 IU, QW
     Route: 065
  11. ACETAMINOPHEN [Concomitant]
     Active Substance: ACETAMINOPHEN
     Indication: Product used for unknown indication
     Dosage: UNK
     Route: 065
  12. SUMATRIPTAN [Concomitant]
     Active Substance: SUMATRIPTAN
     Indication: Product used for unknown indication
     Dosage: 50 MG
     Route: 065
  13. TALTZ [Concomitant]
     Active Substance: IXEKIZUMAB
     Indication: Product used for unknown indication
     Dosage: 80 MG, Q4W
     Route: 065

REACTIONS (36)
  - Fallopian tube abscess [Not Recovered/Not Resolved]
  - Ovarian abscess [Not Recovered/Not Resolved]
  - Respiratory tract infection [Not Recovered/Not Resolved]
  - Gastrointestinal infection [Not Recovered/Not Resolved]
  - Pneumonia [Not Recovered/Not Resolved]
  - Psoriatic arthropathy [Recovered/Resolved]
  - Jaw fistula [Recovered/Resolved]
  - Listless [Recovered/Resolved]
  - Sinusitis [Recovered/Resolved]
  - Migraine [Recovered/Resolved]
  - Pain in jaw [Recovered/Resolved]
  - Constipation [Recovering/Resolving]
  - Rhinorrhoea [Recovered/Resolved]
  - Tonsillitis [Recovered/Resolved]
  - Stress [Recovered/Resolved]
  - Initial insomnia [Recovered/Resolved]
  - Toothache [Recovered/Resolved]
  - Sensation of foreign body [Recovered/Resolved]
  - Scarlet fever [Recovered/Resolved]
  - Tonsillar inflammation [Recovered/Resolved]
  - COVID-19 [Recovered/Resolved]
  - Food craving [Recovered/Resolved]
  - Insomnia [Recovered/Resolved]
  - Autoinflammatory disease [Recovered/Resolved]
  - Fatigue [Not Recovered/Not Resolved]
  - Headache [Recovered/Resolved]
  - Nausea [Recovered/Resolved]
  - Chills [Recovered/Resolved]
  - Headache [Recovered/Resolved]
  - Abdominal pain [Recovered/Resolved]
  - Pyrexia [Recovered/Resolved]
  - Pyrexia [Recovered/Resolved]
  - Liver function test increased [Recovered/Resolved]
  - Fatigue [Recovered/Resolved]
  - Cystitis noninfective [Recovered/Resolved]
  - Cystitis noninfective [Recovered/Resolved]

NARRATIVE: CASE EVENT DATE: 20200908
